FAERS Safety Report 11984935 (Version 6)
Quarter: 2016Q1

REPORT INFORMATION
  Report Type: Spontaneous
  Country: GB (occurrence: GB)
  Receive Date: 20160201
  Receipt Date: 20160301
  Transmission Date: 20160526
  Serious: Yes (Other)
  Sender: FDA-Public Use
  Company Number: GB-SA-2016SA013355

PATIENT
  Sex: Male

DRUGS (3)
  1. TOUJEO [Suspect]
     Active Substance: INSULIN GLARGINE
     Route: 065
     Dates: start: 20160125
  2. SOLOSTAR [Concomitant]
     Active Substance: DEVICE
     Dates: start: 20160125
  3. LANTUS [Suspect]
     Active Substance: INSULIN GLARGINE
     Route: 065

REACTIONS (3)
  - Skin reaction [Unknown]
  - Mass [Unknown]
  - Syncope [Unknown]

NARRATIVE: CASE EVENT DATE: 201601
